FAERS Safety Report 9604810 (Version 1)
Quarter: 2013Q4

REPORT INFORMATION
  Report Type: Report from Study
  Country: US (occurrence: US)
  Receive Date: 20131008
  Receipt Date: 20131008
  Transmission Date: 20140711
  Serious: Yes (Other)
  Sender: FDA-Public Use
  Company Number: US-JNJFOC-20131000176

PATIENT
  Sex: Female

DRUGS (1)
  1. REMICADE [Suspect]
     Indication: CROHN^S DISEASE
     Dosage: 2 DOSES
     Route: 042

REACTIONS (5)
  - Cervical polyp [Unknown]
  - Lupus-like syndrome [Recovering/Resolving]
  - Uterine leiomyoma [Unknown]
  - Candida infection [Not Recovered/Not Resolved]
  - Fibromyalgia [Unknown]
